FAERS Safety Report 21761007 (Version 1)
Quarter: 2022Q4

REPORT INFORMATION
  Report Type: Report from Study
  Country: US (occurrence: US)
  Receive Date: 20221221
  Receipt Date: 20221221
  Transmission Date: 20230113
  Serious: Yes (Other)
  Sender: FDA-Public Use
  Company Number: US-HORIZON THERAPEUTICS-HZN-2022-006173

PATIENT

DRUGS (1)
  1. TEPEZZA [Suspect]
     Active Substance: TEPROTUMUMAB-TRBW
     Indication: Endocrine ophthalmopathy
     Dosage: FIRST DOSE
     Route: 065
     Dates: start: 20220615

REACTIONS (5)
  - Deafness neurosensory [Not Recovered/Not Resolved]
  - Ear pain [Not Recovered/Not Resolved]
  - Eustachian tube patulous [Not Recovered/Not Resolved]
  - Hypoacusis [Not Recovered/Not Resolved]
  - Autophony [Not Recovered/Not Resolved]

NARRATIVE: CASE EVENT DATE: 20220101
